FAERS Safety Report 8093949-2 (Version None)
Quarter: 2012Q1

REPORT INFORMATION
  Report Type: 
  Country: None (occurrence: None)
  Receive Date: 20120130
  Receipt Date: 20120124
  Transmission Date: 20120608
  Serious: Yes (Death, Hospitalization)
  Sender: FDA-Public Use
  Company Number: US-CELGENEUS-163-21880-12012589

PATIENT
  Age: 57 Year
  Sex: Male

DRUGS (10)
  1. ALPRAZOLAM [Concomitant]
     Route: 065
  2. SEVELAMER [Concomitant]
     Route: 065
  3. HYDROCODONE BITARTRATE AND ACETAMINOPHEN [Concomitant]
     Route: 065
  4. OMEPRAZOLE [Concomitant]
     Route: 065
  5. HYDROMORPHONE HCL [Concomitant]
     Route: 065
  6. ALLOPURINOL [Concomitant]
     Route: 065
  7. MIRTAZAPINE [Concomitant]
     Route: 065
  8. ONDANSETRON [Concomitant]
     Route: 065
  9. REVLIMID [Suspect]
     Indication: MULTIPLE MYELOMA
     Dosage: 5 MILLIGRAM
     Route: 048
     Dates: start: 20111001, end: 20120101
  10. FENTANYL [Concomitant]
     Route: 065

REACTIONS (3)
  - DRUG INEFFECTIVE [None]
  - DEATH [None]
  - FAILURE TO THRIVE [None]
